FAERS Safety Report 7522619-1 (Version None)
Quarter: 2011Q2

REPORT INFORMATION
  Report Type: 
  Country: None (occurrence: None)
  Receive Date: 20110603
  Receipt Date: 20110526
  Transmission Date: 20111010
  Serious: Yes (Hospitalization, Other)
  Sender: FDA-Public Use
  Company Number: JP-EISAI INC-E3810-04710-SPO-JP

PATIENT
  Age: 77 Year
  Sex: Female

DRUGS (19)
  1. CELECOXIB [Concomitant]
     Route: 048
  2. DOGMATYL [Concomitant]
  3. AMOBAN [Concomitant]
     Route: 048
  4. CLARITIN [Concomitant]
  5. SENNOSIDE [Concomitant]
     Route: 048
  6. CHINESE HERBAL MEDICINE [Concomitant]
  7. LASIX [Concomitant]
  8. RABEPRAZOLE SODIUM [Suspect]
     Route: 048
     Dates: start: 20100601, end: 20110330
  9. WARFARIN SODIUM [Concomitant]
     Route: 048
  10. SEROQUEL [Concomitant]
     Route: 048
  11. LIPITOR [Concomitant]
  12. SELBEX [Concomitant]
  13. ALFAROL [Concomitant]
  14. CALCIUM CARBONATE [Interacting]
     Dates: start: 20110222
  15. ENALAPRIL MALEATE [Concomitant]
  16. DEPAS [Concomitant]
     Route: 048
  17. BISOPROLOL FUMARATE [Concomitant]
     Route: 048
  18. ATARAX [Concomitant]
  19. RESTAMIN KOWA [Concomitant]

REACTIONS (2)
  - BLOOD PHOSPHORUS INCREASED [None]
  - DRUG INTERACTION [None]
